FAERS Safety Report 17801434 (Version 1)
Quarter: 2020Q2

REPORT INFORMATION
  Report Type: Spontaneous
  Country: IT (occurrence: IT)
  Receive Date: 20200519
  Receipt Date: 20200519
  Transmission Date: 20200714
  Serious: Yes (Hospitalization, Other)
  Sender: FDA-Public Use
  Company Number: BAXTER-2020BAX009924

PATIENT
  Age: 13 Day
  Sex: Female

DRUGS (6)
  1. EXOMAX, 2 MG/ML. SOLUZIONE PER INFUSIONE [Suspect]
     Active Substance: FLUCONAZOLE
     Indication: FUNGAL INFECTION
     Dosage: EVERY 48 HOURS
     Route: 065
  2. RANITIDINE. [Suspect]
     Active Substance: RANITIDINE
     Indication: PRODUCT USED FOR UNKNOWN INDICATION
     Route: 065
  3. CASPOFUNGIN [Concomitant]
     Active Substance: CASPOFUNGIN
     Indication: CANDIDA INFECTION
     Route: 065
  4. AMPHOTERICIN B. [Suspect]
     Active Substance: AMPHOTERICIN B
     Indication: CANDIDA INFECTION
     Dosage: INITIAL DOSE UNKNOWN, LATER INCREASED TO 3 MG/KG/DAY
     Route: 065
  5. GENTAMICIN. [Suspect]
     Active Substance: GENTAMICIN
     Indication: ANTIBIOTIC THERAPY
     Dosage: ADMINISTERED VIA UMBILICAL VENOUS CATHETER
     Route: 050
  6. AMPICILLIN [Suspect]
     Active Substance: AMPICILLIN
     Indication: ANTIBIOTIC THERAPY
     Dosage: ADMINISTERED VIA UMBILICAL VENOUS CATHETER
     Route: 050

REACTIONS (5)
  - Intestinal obstruction [None]
  - Drug ineffective [None]
  - Candida infection [None]
  - Sepsis [None]
  - Liver abscess [None]
